FAERS Safety Report 4444256-8 (Version None)
Quarter: 2004Q3

REPORT INFORMATION
  Report Type: 
  Country: None (occurrence: None)
  Receive Date: 20040902
  Receipt Date: 20040823
  Transmission Date: 20050211
  Serious: Yes (Death)
  Sender: FDA-Public Use
  Company Number: USA-2004-0016514

PATIENT
  Age: 36 Year
  Sex: Female
  Weight: 83 kg

DRUGS (1)
  1. OXYCODONE HCL [Suspect]
     Dosage: MG

REACTIONS (12)
  - ACCIDENT [None]
  - ACCIDENTAL OVERDOSE [None]
  - CORONARY ARTERY ATHEROSCLEROSIS [None]
  - DIABETES MELLITUS [None]
  - DRUG ABUSER [None]
  - DRUG TOXICITY [None]
  - INTENTIONAL MISUSE [None]
  - NEPHROPATHY [None]
  - PULMONARY OEDEMA [None]
  - SCRATCH [None]
  - SPLEEN CONGESTION [None]
  - VOMITING [None]
